FAERS Safety Report 6014600-9 (Version None)
Quarter: 2008Q4

REPORT INFORMATION
  Report Type: 
  Country: None (occurrence: None)
  Receive Date: 20081219
  Receipt Date: 20080910
  Transmission Date: 20090506
  Serious: No
  Sender: FDA-Public Use
  Company Number: A0746810A

PATIENT
  Age: 64 Year
  Sex: Male

DRUGS (10)
  1. AVODART [Suspect]
     Indication: BENIGN PROSTATIC HYPERPLASIA
     Dosage: 1CAP PER DAY
     Route: 048
     Dates: start: 20080714
  2. AMLODIPINE BESYLATE AND BENAZEPRIL HCL [Concomitant]
  3. PLAVIX [Concomitant]
  4. LIPITOR [Concomitant]
  5. FOLIC ACID [Concomitant]
  6. METOPROLOL TARTRATE [Concomitant]
  7. ISOSORBIDE [Concomitant]
  8. VITAMIN E [Concomitant]
  9. PYRIDOXINE HCL [Concomitant]
  10. VITAMIN B-12 [Concomitant]

REACTIONS (1)
  - FREQUENT BOWEL MOVEMENTS [None]
